FAERS Safety Report 16138530 (Version 2)
Quarter: 2019Q2

REPORT INFORMATION
  Report Type: Other
  Country: GB (occurrence: GB)
  Receive Date: 20190401
  Receipt Date: 20190416
  Transmission Date: 20190711
  Serious: Yes (Disabling, Other)
  Sender: FDA-Public Use
  Company Number: GB-ASPEN-GLO2019GB002937

PATIENT
  Age: 36 Year
  Sex: Male

DRUGS (4)
  1. DEXAMETHASONE. [Suspect]
     Active Substance: DEXAMETHASONE
     Indication: PROPHYLAXIS OF NAUSEA AND VOMITING
     Dosage: 4 MG. DAYS 2-5, 4 CYCLES 3 WEEKS APART
     Route: 048
  2. CISPLATIN. [Suspect]
     Active Substance: CISPLATIN
     Indication: TESTIS CANCER
     Dosage: 40 MG/M2, QD. DAYS 1-2, 4 CYCLES 3 WEEKS APART.
     Route: 042
  3. DEXAMETHASONE. [Suspect]
     Active Substance: DEXAMETHASONE
     Dosage: 8 MG. DAY 1, 4 CYCLES 3 WEEKS APART
     Route: 048
  4. ETOPOSIDE. [Suspect]
     Active Substance: ETOPOSIDE
     Indication: TESTIS CANCER
     Dosage: 165 MG/M2, QD. DAYS 1-3, 4 CYCLES 3 WEEKS APART.
     Route: 042

REACTIONS (3)
  - Gait disturbance [Recovering/Resolving]
  - Osteonecrosis [Recovering/Resolving]
  - Groin pain [Unknown]
